FAERS Safety Report 15128900 (Version 1)
Quarter: 2018Q3

REPORT INFORMATION
  Report Type: Spontaneous
  Country: US (occurrence: US)
  Receive Date: 20180711
  Receipt Date: 20180711
  Transmission Date: 20181010
  Serious: No
  Sender: FDA-Public Use
  Company Number: US-BRISTOL-MYERS SQUIBB COMPANY-BMS-2018-063418

PATIENT
  Sex: Male
  Weight: 72.57 kg

DRUGS (5)
  1. MAXIDENE [Concomitant]
     Active Substance: PIROXICAM
     Indication: PRODUCT USED FOR UNKNOWN INDICATION
     Route: 065
  2. OPDIVO [Suspect]
     Active Substance: NIVOLUMAB
     Indication: SMALL CELL LUNG CANCER
     Dosage: UNK
     Route: 042
     Dates: start: 20180607
  3. VITAMIN B12 [Concomitant]
     Active Substance: CYANOCOBALAMIN
     Indication: PRODUCT USED FOR UNKNOWN INDICATION
     Dosage: SHOT ONCE A MONTH
     Route: 065
  4. LIPITOR [Concomitant]
     Active Substance: ATORVASTATIN CALCIUM
     Indication: PRODUCT USED FOR UNKNOWN INDICATION
     Route: 065
  5. TRIAMTERENE. [Concomitant]
     Active Substance: TRIAMTERENE
     Indication: ANTICOAGULANT THERAPY
     Route: 065

REACTIONS (14)
  - Pollakiuria [Unknown]
  - Product use in unapproved indication [Unknown]
  - Fatigue [Unknown]
  - Feeling cold [Unknown]
  - Pruritus [Recovered/Resolved]
  - Bone disorder [Unknown]
  - General physical health deterioration [Unknown]
  - Dizziness [Unknown]
  - Asthenia [Unknown]
  - Arthralgia [Unknown]
  - Nervous system disorder [Unknown]
  - Muscular weakness [Unknown]
  - Muscle spasms [Unknown]
  - Joint swelling [Unknown]
